FAERS Safety Report 5083326-0 (Version None)
Quarter: 2006Q3

REPORT INFORMATION
  Report Type: 
  Country: None (occurrence: None)
  Receive Date: 20060816
  Receipt Date: 20060811
  Transmission Date: 20061208
  Serious: Yes (Hospitalization)
  Sender: FDA-Public Use
  Company Number: TPA2006A00455

PATIENT
  Age: 50 Year
  Sex: Female
  Weight: 111.1313 kg

DRUGS (9)
  1. ACTOS [Suspect]
     Indication: DIABETES MELLITUS NON-INSULIN-DEPENDENT
     Dosage: 15  MG, 1 IN 1 D, PER ORAL
     Route: 048
     Dates: start: 20040901
  2. COREG (CARVEDILOL) (3.125 MILLIGRAM) [Concomitant]
  3. DIGOXIN (DIGOXIN) (0.125 MILLIGRAM) [Concomitant]
  4. ZESTORETIC [Concomitant]
  5. FOLIC ACID (FOLIC ACID) (1 MILLIGRAM) [Concomitant]
  6. LASIX (FUROSEMIDE) (40 MILLIGRAM) [Concomitant]
  7. METOPROLOL (METOPROLOL) (100 MILLIGRAM) [Concomitant]
  8. ASPIRIN [Concomitant]
  9. MULTIVITAMIN (ERGOCALCIFEROL, ASCORBIC ACID, FOLIC ACID, THIAMINE HDRO [Concomitant]

REACTIONS (2)
  - CARDIAC FAILURE CONGESTIVE [None]
  - CARDIOMEGALY [None]
